FAERS Safety Report 19035935 (Version 1)
Quarter: 2021Q1

REPORT INFORMATION
  Report Type: Spontaneous
  Country: DE (occurrence: DE)
  Receive Date: 20210321
  Receipt Date: 20210321
  Transmission Date: 20210420
  Serious: Yes (Other)
  Sender: FDA-Public Use
  Company Number: DE-TEVA-2021-DE-1891509

PATIENT
  Age: 46 Year
  Sex: Female

DRUGS (6)
  1. ALPRAZOLAM. [Suspect]
     Active Substance: ALPRAZOLAM
     Dosage: UNKNOWN
     Route: 048
     Dates: start: 20030110, end: 20030110
  2. INSIDON [Suspect]
     Active Substance: OPIPRAMOL HYDROCHLORIDE
     Indication: DEPRESSION
     Dosage: 3 DOSAGE FORMS DAILY; 3 TAB/DAY
     Route: 048
     Dates: start: 2002, end: 2002
  3. INSIDON [Suspect]
     Active Substance: OPIPRAMOL HYDROCHLORIDE
     Dosage: 2 DOSAGE FORMS DAILY; 2 TAB/DAY
     Route: 048
     Dates: start: 2002, end: 2002
  4. DURAZANIL [Suspect]
     Active Substance: BROMAZEPAM
     Dosage: UNKNOWN
     Route: 048
     Dates: start: 20030110, end: 20030110
  5. INSIDON [Suspect]
     Active Substance: OPIPRAMOL HYDROCHLORIDE
     Indication: DEPRESSION
     Dosage: UNKNOWN
     Route: 048
     Dates: start: 20030110, end: 20030110
  6. INSIDON [Suspect]
     Active Substance: OPIPRAMOL HYDROCHLORIDE
     Dosage: 3 DOSAGE FORMS DAILY; 3 TAB/DAY
     Route: 048
     Dates: start: 2002, end: 200212

REACTIONS (3)
  - Tachycardia [Unknown]
  - Suicide attempt [Recovered/Resolved]
  - Fatigue [Unknown]

NARRATIVE: CASE EVENT DATE: 2002
